FAERS Safety Report 17285094 (Version 6)
Quarter: 2020Q3

REPORT INFORMATION
  Report Type: Spontaneous
  Country: US (occurrence: US)
  Receive Date: 20200117
  Receipt Date: 20200703
  Transmission Date: 20201102
  Serious: No
  Sender: FDA-Public Use
  Company Number: US-VERTEX PHARMACEUTICALS-2020-000383

PATIENT
  Age: 62 Year
  Sex: Female
  Weight: 102 kg

DRUGS (3)
  1. TRIKAFTA [Suspect]
     Active Substance: ELEXACAFTOR\IVACAFTOR\TEZACAFTOR
     Indication: CYSTIC FIBROSIS
     Dosage: 2 TABLETS (100MG ELEXACAFTOR/ 50MG TEZACAFTOR/ 75MG IVACAFTOR)AM; 1 TABLET (150MG IVACAFTOR) PM
     Route: 048
     Dates: start: 20191227
  2. ALBUTEROL;TRIAMCINOLONE [Concomitant]
  3. PULMOZYME [Concomitant]
     Active Substance: DORNASE ALFA

REACTIONS (16)
  - Nausea [Not Recovered/Not Resolved]
  - Cough [Recovered/Resolved]
  - Diarrhoea [Unknown]
  - Pulmonary function test decreased [Unknown]
  - Oesophageal motility disorder [Unknown]
  - Pyrexia [Recovered/Resolved]
  - Meibomian gland dysfunction [Unknown]
  - Abdominal pain upper [Not Recovered/Not Resolved]
  - Rash [Recovered/Resolved]
  - Throat tightness [Not Recovered/Not Resolved]
  - Dysphagia [Not Recovered/Not Resolved]
  - Erythema [Recovered/Resolved]
  - Dry throat [Not Recovered/Not Resolved]
  - Burning sensation [Recovered/Resolved]
  - Rhinorrhoea [Unknown]
  - Headache [Not Recovered/Not Resolved]

NARRATIVE: CASE EVENT DATE: 20200115
